FAERS Safety Report 15704659 (Version 1)
Quarter: 2018Q4

REPORT INFORMATION
  Report Type: Report from Study
  Country: ES (occurrence: ES)
  Receive Date: 20181210
  Receipt Date: 20181210
  Transmission Date: 20190205
  Serious: Yes (Death, Life-Threatening, Hospitalization, Other)
  Sender: FDA-Public Use
  Company Number: ES-TEVA-2018-ES-983965

PATIENT
  Age: 7 Year
  Sex: Female
  Weight: 36.3 kg

DRUGS (12)
  1. ACICLOVIR (201A) [Concomitant]
     Active Substance: ACYCLOVIR
     Indication: PROPHYLAXIS
     Route: 048
     Dates: start: 20180205, end: 20180222
  2. AMBISOME 50 MG POLVO PARA DISPERSI?N PARA PERFUSI?N , 10 VIALES [Concomitant]
     Dosage: 110 MILLIGRAM DAILY;
     Route: 042
     Dates: start: 20180205, end: 20180222
  3. VINCRISTINA SULFATO (809SU) [Suspect]
     Active Substance: VINCRISTINE SULFATE
     Indication: ACUTE LYMPHOCYTIC LEUKAEMIA
     Dosage: 1.7 MILLIGRAM DAILY;
     Route: 042
     Dates: start: 20180223, end: 20180223
  4. DEXAMETASONA (722A) [Interacting]
     Active Substance: DEXAMETHASONE
     Indication: ACUTE LYMPHOCYTIC LEUKAEMIA
     Route: 042
     Dates: start: 20180223, end: 20180301
  5. METOTREXATO (418A) [Interacting]
     Active Substance: METHOTREXATE
     Indication: ACUTE LYMPHOCYTIC LEUKAEMIA
     Route: 042
     Dates: start: 20180223, end: 20180224
  6. HIDROCORTISONA (54A) [Concomitant]
     Active Substance: HYDROCORTISONE
     Indication: PROPHYLAXIS
     Route: 048
     Dates: start: 20180205, end: 20180223
  7. MERCAPTOPURINA (405A) [Interacting]
     Active Substance: MERCAPTOPURINE
     Indication: ACUTE LYMPHOCYTIC LEUKAEMIA
     Dosage: 32 MILLIGRAM DAILY;
     Route: 048
     Dates: start: 20180223, end: 20180226
  8. PIPERACILINA + TAZOBACTAM [Concomitant]
     Active Substance: PIPERACILLIN SODIUM\TAZOBACTAM SODIUM
     Route: 042
     Dates: start: 20180207, end: 20180218
  9. RANITIDINA (2A) [Concomitant]
     Active Substance: RANITIDINE
     Indication: PROPHYLAXIS
     Route: 042
     Dates: start: 20180223, end: 20180223
  10. SEPTRIN 80 MG/400 MG COMPRIMIDOS , 20 COMPRIMIDOS [Concomitant]
     Active Substance: SULFAMETHOXAZOLE\TRIMETHOPRIM
     Indication: PROPHYLAXIS
     Route: 048
     Dates: start: 20180205, end: 20180222
  11. MEROPENEM (7155A) [Concomitant]
     Active Substance: MEROPENEM
     Route: 042
     Dates: start: 20180218, end: 20180223
  12. VANCOMICINA (3197A) [Concomitant]
     Active Substance: VANCOMYCIN
     Route: 042
     Dates: start: 20180218, end: 20180221

REACTIONS (2)
  - Stomatitis [Recovering/Resolving]
  - Drug interaction [Unknown]

NARRATIVE: CASE EVENT DATE: 20180301
